FAERS Safety Report 9538038 (Version 2)
Quarter: 2013Q4

REPORT INFORMATION
  Report Type: Spontaneous
  Country: MX (occurrence: MX)
  Receive Date: 20130920
  Receipt Date: 20131016
  Transmission Date: 20140711
  Serious: No
  Sender: FDA-Public Use
  Company Number: MX-JNJFOC-20130910731

PATIENT
  Sex: Male

DRUGS (3)
  1. VIRLIX [Suspect]
     Indication: CONJUNCTIVAL HYPERAEMIA
     Route: 065
  2. VIRLIX [Suspect]
     Indication: CONJUNCTIVITIS
     Route: 065
  3. VIRLIX [Suspect]
     Indication: ALLERGIC SINUSITIS
     Route: 065

REACTIONS (2)
  - Ocular hyperaemia [Unknown]
  - Drug ineffective [Unknown]
